FAERS Safety Report 20814699 (Version 1)
Quarter: 2022Q2

REPORT INFORMATION
  Report Type: Spontaneous
  Country: FR (occurrence: FR)
  Receive Date: 20220511
  Receipt Date: 20220511
  Transmission Date: 20220720
  Serious: Yes (Hospitalization)
  Sender: FDA-Public Use
  Company Number: None

PATIENT
  Age: 69 Year
  Sex: Female
  Weight: 67 kg

DRUGS (7)
  1. FILGRASTIM [Suspect]
     Active Substance: FILGRASTIM
     Indication: Chemotherapy toxicity attenuation
     Dosage: 30 MU PER DAY IF NEEDED (30 MU = 300 ?G)
     Route: 042
     Dates: start: 20220310
  2. RETACRIT [Suspect]
     Active Substance: EPOETIN ALFA-EPBX
     Indication: Chemotherapy toxicity attenuation
     Dosage: 30000 IU ONCE A WEEK IF NEEDED
     Route: 058
     Dates: start: 20220310
  3. REVLIMID [Suspect]
     Active Substance: LENALIDOMIDE
     Indication: B-cell lymphoma stage IV
     Dosage: 25 MG/DAY 21/28 DAY
     Route: 048
     Dates: start: 20220306, end: 20220326
  4. LOVENOX [Suspect]
     Active Substance: ENOXAPARIN SODIUM
     Indication: Thrombosis prophylaxis
     Dosage: 4000 IU, 1X/DAY (IN THE EVENING)
     Route: 058
  5. MONJUVI [Suspect]
     Active Substance: TAFASITAMAB-CXIX
     Indication: B-cell lymphoma stage IV
     Dosage: 828 MG, WEEKLY
     Route: 042
     Dates: start: 20220310
  6. BACTRIM [Suspect]
     Active Substance: SULFAMETHOXAZOLE\TRIMETHOPRIM
     Indication: Infection prophylaxis
     Dosage: 1 TABLET IN THE MORNING ON MONDAY, WEDNESDAY AND FRIDAY
     Route: 048
     Dates: start: 20220310, end: 20220326
  7. VALACYCLOVIR HYDROCHLORIDE [Suspect]
     Active Substance: VALACYCLOVIR HYDROCHLORIDE
     Indication: Infection prophylaxis
     Dosage: 1000 MG, 1X/DAY (IN THE EVENING)
     Route: 048
     Dates: start: 20220310

REACTIONS (1)
  - Toxic skin eruption [Recovering/Resolving]

NARRATIVE: CASE EVENT DATE: 20220326
